FAERS Safety Report 24082970 (Version 2)
Quarter: 2024Q3

REPORT INFORMATION
  Report Type: Spontaneous
  Country: US (occurrence: US)
  Receive Date: 20240712
  Receipt Date: 20240812
  Transmission Date: 20241017
  Serious: Yes (Hospitalization)
  Sender: SANOFI AVENTIS
  Company Number: US-SA-SAC20240604001329

PATIENT
  Age: 77 Year
  Sex: Female
  Weight: 79.02 kg

DRUGS (1)
  1. CAPRELSA [Suspect]
     Active Substance: VANDETANIB
     Indication: Thyroid cancer
     Dosage: 300 MG, QD
     Route: 048
     Dates: start: 20240321

REACTIONS (2)
  - Diarrhoea [Not Recovered/Not Resolved]
  - Dizziness [Unknown]

NARRATIVE: CASE EVENT DATE: 20240101
